FAERS Safety Report 5678888-6 (Version None)
Quarter: 2008Q1

REPORT INFORMATION
  Report Type: 
  Country: None (occurrence: None)
  Receive Date: 20080325
  Receipt Date: 20080319
  Transmission Date: 20080703
  Serious: Yes (Hospitalization)
  Sender: FDA-Public Use
  Company Number: JP-AVENTIS-200810878JP

PATIENT
  Age: 76 Year
  Sex: Male

DRUGS (1)
  1. TAXOTERE [Suspect]
     Indication: NON-SMALL CELL LUNG CANCER

REACTIONS (2)
  - ILEUS PARALYTIC [None]
  - RENAL DISORDER [None]
